FAERS Safety Report 4989134-0 (Version None)
Quarter: 2006Q2

REPORT INFORMATION
  Report Type: 
  Country: None (occurrence: None)
  Receive Date: 20060502
  Receipt Date: 20060412
  Transmission Date: 20061013
  Serious: Yes (Death)
  Sender: FDA-Public Use
  Company Number: US-GILEAD-2006-0009447

PATIENT
  Age: 46 Year
  Sex: Male
  Weight: 70.1 kg

DRUGS (7)
  1. EMTRICITABINE [Suspect]
     Indication: HIV INFECTION
     Route: 048
     Dates: start: 20060215, end: 20060304
  2. TENOFOVIR DISOPROXIL FUMARATE [Suspect]
     Indication: HIV INFECTION
     Route: 048
     Dates: start: 20060215, end: 20060304
  3. NEVIRAPINE [Suspect]
     Indication: HIV INFECTION
     Route: 048
     Dates: start: 20060109, end: 20060304
  4. DAPSONE [Concomitant]
     Route: 048
     Dates: start: 20060123, end: 20060323
  5. EMTRICITABINE/TENOFOVIR DF [Concomitant]
     Indication: HIV INFECTION
     Route: 048
     Dates: start: 20051208
  6. EFAVIRENZ [Concomitant]
     Indication: HIV INFECTION
     Route: 048
     Dates: start: 20051208
  7. COMBIVIR [Concomitant]
     Indication: HIV INFECTION
     Dates: start: 20060109, end: 20060214

REACTIONS (4)
  - DEATH [None]
  - DELIRIUM [None]
  - LEUKOPENIA [None]
  - NEUTROPENIA [None]
